FAERS Safety Report 24381244 (Version 1)
Quarter: 2024Q4

REPORT INFORMATION
  Report Type: Report from Study
  Country: US (occurrence: US)
  Receive Date: 20241001
  Receipt Date: 20241001
  Transmission Date: 20250114
  Serious: Yes (Other)
  Sender: UCB
  Company Number: US-UCBSA-2024048485

PATIENT
  Sex: Female

DRUGS (1)
  1. CERTOLIZUMAB PEGOL [Suspect]
     Active Substance: CERTOLIZUMAB PEGOL
     Indication: Psoriasis
     Dosage: 400 MILLIGRAM, EV 2 WEEKS(QOW)
     Route: 058
     Dates: start: 20240810

REACTIONS (5)
  - Psoriatic arthropathy [Not Recovered/Not Resolved]
  - Stress [Not Recovered/Not Resolved]
  - Gastrointestinal disorder [Recovered/Resolved]
  - Upper respiratory tract infection [Recovered/Resolved]
  - Maternal exposure during breast feeding [Unknown]

NARRATIVE: CASE EVENT DATE: 20240101
